FAERS Safety Report 7165992-9 (Version None)
Quarter: 2010Q4

REPORT INFORMATION
  Report Type: 
  Country: None (occurrence: None)
  Receive Date: 20101216
  Receipt Date: 20101207
  Transmission Date: 20110411
  Serious: No
  Sender: FDA-Public Use
  Company Number: US-BIOGENIDEC-2010BI043114

PATIENT
  Age: 53 Year
  Sex: Female

DRUGS (4)
  1. TYSABRI [Suspect]
     Indication: MULTIPLE SCLEROSIS
     Route: 042
     Dates: start: 20100910
  2. HEART MEDICATIONS (NOS) [Concomitant]
     Indication: CARDIAC DISORDER
     Dates: start: 20040101
  3. ASPIRIN [Concomitant]
     Indication: HEADACHE
  4. TYLENOL (CAPLET) [Concomitant]
     Indication: HEADACHE

REACTIONS (2)
  - MUSCLE SPASMS [None]
  - PARAESTHESIA [None]
